FAERS Safety Report 24603835 (Version 2)
Quarter: 2024Q4

REPORT INFORMATION
  Report Type: Spontaneous
  Country: TH (occurrence: TH)
  Receive Date: 20241111
  Receipt Date: 20241122
  Transmission Date: 20250115
  Serious: Yes (Death, Hospitalization)
  Sender: TEVA
  Company Number: TH-TEVA-VS-3261982

PATIENT
  Age: 4 Year
  Sex: Female

DRUGS (2)
  1. CYCLOSPORINE [Suspect]
     Active Substance: CYCLOSPORINE
     Indication: Autoimmune lymphoproliferative syndrome
     Dosage: CYCLOSPORINE A
     Route: 065
  2. PREDNISOLONE [Suspect]
     Active Substance: PREDNISOLONE
     Indication: Autoimmune lymphoproliferative syndrome
     Route: 065

REACTIONS (1)
  - Mycobacterium avium complex infection [Fatal]
